FAERS Safety Report 25934290 (Version 1)
Quarter: 2025Q4

REPORT INFORMATION
  Report Type: Spontaneous
  Country: US (occurrence: US)
  Receive Date: 20251017
  Receipt Date: 20251017
  Transmission Date: 20260118
  Serious: Yes (Other)
  Sender: AMGEN
  Company Number: US-AMGEN-USASP2025203291

PATIENT
  Age: 17 Year
  Sex: Male

DRUGS (4)
  1. ADALIMUMAB [Suspect]
     Active Substance: ADALIMUMAB
     Indication: Behcet^s syndrome
     Dosage: UNK
     Route: 065
  2. PREDNISONE [Suspect]
     Active Substance: PREDNISONE
     Indication: Behcet^s syndrome
     Dosage: UNK
     Route: 065
  3. ENOXAPARIN [Concomitant]
     Active Substance: ENOXAPARIN
     Indication: Behcet^s syndrome
  4. AZATHIOPRINE [Concomitant]
     Active Substance: AZATHIOPRINE
     Indication: Behcet^s syndrome

REACTIONS (7)
  - Restrictive cardiomyopathy [Unknown]
  - Deep vein thrombosis [Unknown]
  - Cardiac ventricular thrombosis [Unknown]
  - Tricuspid valve incompetence [Recovered/Resolved]
  - Drug effective for unapproved indication [Unknown]
  - Ejection fraction decreased [Unknown]
  - Off label use [Unknown]
